FAERS Safety Report 17607629 (Version 1)
Quarter: 2020Q1

REPORT INFORMATION
  Report Type: Report from Study
  Country: US (occurrence: US)
  Receive Date: 20200331
  Receipt Date: 20200331
  Transmission Date: 20200409
  Serious: Yes (Hospitalization)
  Sender: FDA-Public Use
  Company Number: US-ACTELION-A-US2019-198721

PATIENT
  Age: 69 Year
  Sex: Female

DRUGS (16)
  1. POTASSIUM [Concomitant]
     Active Substance: POTASSIUM
     Dosage: 99 MG 1 TAB THREE TIMES A WEEK
  2. VITAMIN D [Concomitant]
     Active Substance: VITAMIN D NOS
     Dosage: 50 MCG ONE IN AM
  3. POTASSIUM CHLORIDE. [Concomitant]
     Active Substance: POTASSIUM CHLORIDE
     Dosage: 20 MEQ, QD
     Dates: start: 20200214
  4. FUROSEMIDE. [Concomitant]
     Active Substance: FUROSEMIDE
  5. ADEMPAS [Concomitant]
     Active Substance: RIOCIGUAT
     Dosage: 1.0 MG, TID
     Dates: start: 201910
  6. PRADAXA [Concomitant]
     Active Substance: DABIGATRAN ETEXILATE MESYLATE
     Dosage: 150 MG, BID
  7. CALCIUM [Concomitant]
     Active Substance: CALCIUM
     Dosage: 600 MG, QAM
  8. CALCIUM GLUCONATE. [Concomitant]
     Active Substance: CALCIUM GLUCONATE
  9. ALENDRONATE [Concomitant]
     Active Substance: ALENDRONATE SODIUM
     Indication: BONE DENSITY ABNORMAL
     Dosage: 70 MG, Q1WEEK
  10. AMLODIPINE [Concomitant]
     Active Substance: AMLODIPINE BESYLATE
  11. OPSUMIT [Suspect]
     Active Substance: MACITENTAN
     Indication: PULMONARY ARTERIAL HYPERTENSION
     Dosage: 10 MG, QD AT BEDTIME
     Route: 048
     Dates: start: 20191111
  12. LEVOTHYROXINE. [Concomitant]
     Active Substance: LEVOTHYROXINE
     Dosage: 75 MCG, QAM
  13. ATORVASTATIN [Concomitant]
     Active Substance: ATORVASTATIN
     Dosage: 10 MG, DAILY AT BEDTIME
  14. OXYBUTYNIN. [Concomitant]
     Active Substance: OXYBUTYNIN CHLORIDE
     Dosage: 10 MG, IN AM
  15. POTASSIUM [Concomitant]
     Active Substance: POTASSIUM
     Dosage: 40 MEQ/L, QD
     Dates: start: 20200214
  16. COLECALCIFEROL [Concomitant]
     Active Substance: CHOLECALCIFEROL

REACTIONS (8)
  - Cough [Not Recovered/Not Resolved]
  - Pneumonia bacterial [Recovered/Resolved]
  - Dyspnoea [Recovered/Resolved]
  - Staphylococcus test positive [Not Recovered/Not Resolved]
  - Pulmonary oedema [Unknown]
  - Hypokalaemia [Unknown]
  - Pulmonary function test [Unknown]
  - Oxygen saturation [Unknown]

NARRATIVE: CASE EVENT DATE: 201911
